FAERS Safety Report 16208039 (Version 3)
Quarter: 2019Q2

REPORT INFORMATION
  Report Type: Spontaneous
  Country: US (occurrence: US)
  Receive Date: 20190417
  Receipt Date: 20190617
  Transmission Date: 20190711
  Serious: No
  Sender: FDA-Public Use
  Company Number: US-PFIZER INC-2019155588

PATIENT
  Age: 71 Year
  Sex: Female

DRUGS (4)
  1. ZARONTIN [Suspect]
     Active Substance: ETHOSUXIMIDE
     Indication: PETIT MAL EPILEPSY
     Dosage: 250 MG, UNK
     Dates: start: 20190325
  2. ZONISAMIDE. [Concomitant]
     Active Substance: ZONISAMIDE
     Dosage: 100 MG, ALTERNATE DAY
  3. ZONISAMIDE. [Concomitant]
     Active Substance: ZONISAMIDE
     Dosage: WEANING OFF
     Dates: start: 2017
  4. ZARONTIN [Suspect]
     Active Substance: ETHOSUXIMIDE
     Dosage: 125 MG (CUT IN HALF), UNK
     Dates: start: 20190412, end: 2019

REACTIONS (5)
  - Nervousness [Unknown]
  - Agitation [Unknown]
  - Disturbance in attention [Unknown]
  - Intentional product misuse [Unknown]
  - Insomnia [Unknown]

NARRATIVE: CASE EVENT DATE: 20190409
